FAERS Safety Report 8249643-8 (Version None)
Quarter: 2012Q2

REPORT INFORMATION
  Report Type: 
  Country: None (occurrence: None)
  Receive Date: 20120402
  Receipt Date: 20120322
  Transmission Date: 20120825
  Serious: Yes (Hospitalization)
  Sender: FDA-Public Use
  Company Number: FR-COVIDIEN/TYCO HEALTHCARE/MALLINCKRODT-T201201160

PATIENT
  Age: 9 Year
  Sex: Male
  Weight: 30 kg

DRUGS (4)
  1. RISPERIDONE [Suspect]
     Indication: AGGRESSION
  2. METHYLIN [Suspect]
     Indication: PSYCHOMOTOR HYPERACTIVITY
     Dosage: 36 MG, QD
  3. RISPERIDONE [Suspect]
     Indication: PSYCHOMOTOR HYPERACTIVITY
     Dosage: 2 MG, QD
  4. METHYLIN [Suspect]
     Indication: AGGRESSION
     Dosage: 20 MG, QD

REACTIONS (2)
  - DRUG INTERACTION [None]
  - HYPERTHERMIA [None]
